FAERS Safety Report 9778067 (Version 1)
Quarter: 2013Q4

REPORT INFORMATION
  Report Type: Report from Study
  Country: US (occurrence: US)
  Receive Date: 20131223
  Receipt Date: 20131223
  Transmission Date: 20140711
  Serious: Yes (Death)
  Sender: FDA-Public Use
  Company Number: US-ROCHE-1322896

PATIENT
  Age: 61 Year
  Sex: Male

DRUGS (2)
  1. BEVACIZUMAB [Suspect]
     Indication: GLIOBLASTOMA
     Route: 042
     Dates: start: 20130613
  2. BLINDED AMG 386 [Suspect]
     Indication: GLIOBLASTOMA
     Dosage: LAST DOSE ADMINISTRATION ON 25/JUL/2013.
     Route: 042
     Dates: start: 20130613

REACTIONS (1)
  - Sudden death [Fatal]
